FAERS Safety Report 16656322 (Version 1)
Quarter: 2019Q3

REPORT INFORMATION
  Report Type: Spontaneous
  Country: US (occurrence: US)
  Receive Date: 20190801
  Receipt Date: 20190801
  Transmission Date: 20191004
  Serious: No
  Sender: FDA-Public Use
  Company Number: US-PACIRA-201700101

PATIENT
  Age: 66 Year
  Sex: Female

DRUGS (1)
  1. EXPAREL [Suspect]
     Active Substance: BUPIVACAINE
     Indication: POSTOPERATIVE ANALGESIA
     Dosage: 266 MG, UNK, FREQUENCY : UNK
     Route: 065

REACTIONS (2)
  - Peroneal nerve palsy [Recovered/Resolved]
  - Hypoaesthesia [Recovered/Resolved]
